FAERS Safety Report 5977026-X (Version None)
Quarter: 2008Q4

REPORT INFORMATION
  Report Type: 
  Country: None (occurrence: None)
  Receive Date: 20081126
  Receipt Date: 20081114
  Transmission Date: 20090506
  Serious: Yes (Hospitalization)
  Sender: FDA-Public Use
  Company Number: 2008002986

PATIENT
  Age: 75 Year
  Sex: Male
  Weight: 78.6 kg

DRUGS (10)
  1. ERLOTINIB [Suspect]
     Indication: NON-SMALL CELL LUNG CANCER
     Dosage: 150 MG, QD, ORAL
     Route: 048
     Dates: start: 20080905
  2. SUNITINIB [Suspect]
     Dosage: 37.5 MG, QD, ORAL
     Route: 048
     Dates: start: 20080905
  3. MULTI-VITAMINS [Concomitant]
  4. TYLENOL W/ CODEINE [Concomitant]
  5. BENADRYL [Concomitant]
  6. MOTRIN [Concomitant]
  7. XALATAN [Concomitant]
  8. REMERON [Concomitant]
  9. DOXYCYCLINE HYCLATE [Concomitant]
  10. HYDROCORTISONE [Concomitant]

REACTIONS (4)
  - CEREBRAL INFARCTION [None]
  - CEREBRAL ISCHAEMIA [None]
  - CONFUSIONAL STATE [None]
  - HYPONATRAEMIA [None]
